FAERS Safety Report 10744518 (Version 3)
Quarter: 2015Q2

REPORT INFORMATION
  Report Type: Report from Study
  Country: US (occurrence: None)
  Receive Date: 20150126
  Receipt Date: 20150622
  Transmission Date: 20150821
  Serious: Yes (Hospitalization)
  Sender: FDA-Public Use
  Company Number: KAD201501-000080

PATIENT
  Age: 61 Year
  Sex: Male
  Weight: 80.8 kg

DRUGS (11)
  1. ABT-450/RITONAVIR/ABT-267 (OMBITASVIR, PARITAPREVIR, RITONAVIR) [Suspect]
     Active Substance: OMBITASVIR\PARITAPREVIR\RITONAVIR
     Indication: HEPATITIS C
     Route: 048
     Dates: start: 20141031, end: 20150126
  2. CLINDAMYCIN (CLINDAMYCIN PHOSPHATE) [Concomitant]
  3. LISINOPRIL. [Concomitant]
     Active Substance: LISINOPRIL
  4. GLIPIZIDE. [Concomitant]
     Active Substance: GLIPIZIDE
  5. METFORMIN [Concomitant]
     Active Substance: METFORMIN HYDROCHLORIDE
  6. MELATONIN [Concomitant]
     Active Substance: MELATONIN
  7. CARVEDILOL. [Concomitant]
     Active Substance: CARVEDILOL
  8. ASPIRIN (ACETYLSALICYLIC ACID) [Concomitant]
     Active Substance: ASPIRIN
  9. REGADENOSON [Concomitant]
     Active Substance: REGADENOSON
  10. ABT-333 [Suspect]
     Active Substance: DASABUVIR
     Indication: HEPATITIS C
     Dosage: 500 MG
     Route: 048
     Dates: start: 20141031, end: 20150126
  11. RIBAVIRIN 200 MG (RIBAVIRIN) [Suspect]
     Active Substance: RIBAVIRIN
     Indication: HEPATITIS C
     Dosage: TABLET, 600 MG TWICE DAILY (1200 MG DAILY), ORAL
     Route: 048
     Dates: start: 20141031, end: 20150126

REACTIONS (5)
  - Chest pain [None]
  - Red blood cell count decreased [None]
  - Exercise electrocardiogram abnormal [None]
  - Haemoglobin decreased [None]
  - Haematocrit decreased [None]

NARRATIVE: CASE EVENT DATE: 20150113
